FAERS Safety Report 17414887 (Version 1)
Quarter: 2020Q1

REPORT INFORMATION
  Report Type: Spontaneous
  Country: US (occurrence: US)
  Receive Date: 20200213
  Receipt Date: 20200213
  Transmission Date: 20200409
  Serious: Yes (Hospitalization)
  Sender: FDA-Public Use
  Company Number: US-TEVA-2020-US-1183340

PATIENT
  Sex: Female
  Weight: 90.8 kg

DRUGS (2)
  1. METHOTREXATE. [Suspect]
     Active Substance: METHOTREXATE
     Indication: RHEUMATOID ARTHRITIS
     Dosage: 20 MG/WEEK
     Route: 048
     Dates: start: 20161117, end: 20190419
  2. XELJANZ XR [Suspect]
     Active Substance: TOFACITINIB CITRATE
     Indication: RHEUMATOID ARTHRITIS
     Route: 065
     Dates: start: 20190419, end: 20191021

REACTIONS (10)
  - Dyspnoea [Recovered/Resolved]
  - Cough [Unknown]
  - Cytokine storm [Unknown]
  - Interstitial lung disease [Unknown]
  - Headache [Recovered/Resolved]
  - Atrial fibrillation [Unknown]
  - Vomiting [Recovered/Resolved]
  - Haemorrhage [Unknown]
  - Pulmonary congestion [Unknown]
  - Pulmonary fibrosis [Unknown]
